FAERS Safety Report 4332170-8 (Version None)
Quarter: 2004Q1

REPORT INFORMATION
  Report Type: 
  Country: None (occurrence: None)
  Receive Date: 20040329
  Receipt Date: 20040211
  Transmission Date: 20041129
  Serious: No
  Sender: FDA-Public Use
  Company Number: US_0402100833

PATIENT
  Age: 34 Year
  Sex: Female

DRUGS (4)
  1. STRATTERA [Suspect]
     Dosage: 40 MG/DAY
     Dates: start: 20030601, end: 20030801
  2. TOPAMAX [Concomitant]
  3. DEPAKOTE [Concomitant]
  4. ZOLOFT [Concomitant]

REACTIONS (1)
  - ANXIETY [None]
